FAERS Safety Report 6895163-2 (Version None)
Quarter: 2010Q3

REPORT INFORMATION
  Report Type: 
  Country: None (occurrence: None)
  Receive Date: 20100728
  Receipt Date: 20100722
  Transmission Date: 20110219
  Serious: Yes (Other)
  Sender: FDA-Public Use
  Company Number: TRP_07135_2010

PATIENT
  Sex: Female

DRUGS (3)
  1. RIBASPHERE [Suspect]
     Indication: HEPATITIS C
     Dosage: (ORAL)
     Route: 048
     Dates: start: 20100412
  2. PEG-INTRON [Suspect]
     Indication: HEPATITIS C
     Dosage: (SUBCUTANEOUS)
     Route: 058
     Dates: start: 20100412
  3. ENBREL [Suspect]
     Indication: SARCOIDOSIS
     Dosage: (DF)

REACTIONS (9)
  - CHEST PAIN [None]
  - DISEASE RECURRENCE [None]
  - DYSPNOEA [None]
  - FATIGUE [None]
  - HEADACHE [None]
  - INJECTION SITE ERYTHEMA [None]
  - INJECTION SITE PRURITUS [None]
  - MYALGIA [None]
  - SARCOIDOSIS [None]
